FAERS Safety Report 21858635 (Version 1)
Quarter: 2023Q1

REPORT INFORMATION
  Report Type: Spontaneous
  Country: US (occurrence: None)
  Receive Date: 20230112
  Receipt Date: 20230112
  Transmission Date: 20230417
  Serious: No
  Sender: FDA-Public Use
  Company Number: None

PATIENT
  Sex: Female

DRUGS (1)
  1. HUMIRA [Suspect]
     Active Substance: ADALIMUMAB
     Indication: Crohn^s disease
     Dosage: 40MG EVERY OTHER WEEK SQ?
     Route: 058
     Dates: start: 202211

REACTIONS (6)
  - Fatigue [None]
  - Depression [None]
  - Depressed mood [None]
  - Arthralgia [None]
  - Back pain [None]
  - Suicidal ideation [None]
